FAERS Safety Report 5932720-1 (Version None)
Quarter: 2008Q4

REPORT INFORMATION
  Report Type: 
  Country: None (occurrence: None)
  Receive Date: 20081027
  Receipt Date: 20081027
  Transmission Date: 20090506
  Serious: Yes (Hospitalization, Disabling)
  Sender: FDA-Public Use
  Company Number: None

PATIENT
  Age: 47 Year
  Sex: Female
  Weight: 83.9154 kg

DRUGS (2)
  1. CHANTIX [Suspect]
     Indication: SMOKING CESSATION THERAPY
     Dosage: 1 TABLET /2 TABLETS ONCE / TWICE PO
     Route: 048
     Dates: start: 20070709, end: 20070807
  2. CHANTIX [Suspect]
     Indication: SMOKING CESSATION THERAPY
     Dosage: ONE TABLET BY MOUTH TWICE DAILY PO
     Route: 048

REACTIONS (10)
  - ATAXIA [None]
  - CONDUCT DISORDER [None]
  - DISTURBANCE IN ATTENTION [None]
  - DYSARTHRIA [None]
  - LEGAL PROBLEM [None]
  - LETHARGY [None]
  - MULTIPLE SCLEROSIS [None]
  - SUICIDE ATTEMPT [None]
  - THINKING ABNORMAL [None]
  - VISUAL IMPAIRMENT [None]
